FAERS Safety Report 5722054-2 (Version None)
Quarter: 2008Q2

REPORT INFORMATION
  Report Type: 
  Country: None (occurrence: None)
  Receive Date: 20080429
  Receipt Date: 20080421
  Transmission Date: 20081010
  Serious: Yes (Hospitalization)
  Sender: FDA-Public Use
  Company Number: GB-ELI_LILLY_AND_COMPANY-GB200804006194

PATIENT
  Age: 82 Year
  Sex: Female
  Weight: 61.8 kg

DRUGS (5)
  1. BYETTA [Suspect]
     Indication: TYPE 2 DIABETES MELLITUS
     Dosage: 5 UG, UNK
     Route: 058
     Dates: start: 20080304
  2. NOVOLOG MIX 70/30 [Concomitant]
     Indication: DIABETES MELLITUS
     Dosage: UNK, 2/D
     Route: 058
     Dates: end: 20080304
  3. BENDROFLUAZIDE [Concomitant]
     Route: 048
  4. LOSARTAN POTASSIUM [Concomitant]
     Dosage: 100 MG, UNK
     Route: 048
  5. METFORMIN HCL [Concomitant]
     Indication: DIABETES MELLITUS
     Dosage: 500 MG, UNK

REACTIONS (1)
  - DIABETIC KETOACIDOSIS [None]
